FAERS Safety Report 21854649 (Version 1)
Quarter: 2023Q1

REPORT INFORMATION
  Report Type: Spontaneous
  Country: US (occurrence: None)
  Receive Date: 20230111
  Receipt Date: 20230111
  Transmission Date: 20230418
  Serious: Yes (Life-Threatening)
  Sender: FDA-Public Use
  Company Number: None

PATIENT
  Age: 61 Year
  Sex: Male
  Weight: 156 kg

DRUGS (13)
  1. SOTALOL [Suspect]
     Active Substance: SOTALOL
     Indication: Atrial fibrillation
     Dosage: FREQUENCY : TWICE A DAY;?
     Route: 048
     Dates: start: 20191120, end: 20220815
  2. SOTALOL [Suspect]
     Active Substance: SOTALOL
     Indication: Atrial flutter
  3. AMPICILLIN SODIUM\SULBACTAM SODIUM [Concomitant]
     Active Substance: AMPICILLIN SODIUM\SULBACTAM SODIUM
     Dates: start: 20220815, end: 20220819
  4. ATORVASTATIN [Concomitant]
     Active Substance: ATORVASTATIN
  5. furosemide IV [Concomitant]
     Dates: start: 20220815, end: 20220817
  6. METOPROLOL TARTRATE [Concomitant]
     Active Substance: METOPROLOL TARTRATE
  7. SACUBITRIL\VALSARTAN [Concomitant]
     Active Substance: SACUBITRIL\VALSARTAN
  8. SPIRONOLACTONE [Concomitant]
     Active Substance: SPIRONOLACTONE
  9. APIXABAN [Concomitant]
     Active Substance: APIXABAN
  10. METFORMIN [Concomitant]
     Active Substance: METFORMIN HYDROCHLORIDE
  11. ondansetron (one dose IV) [Concomitant]
     Dates: start: 20220815, end: 20220815
  12. magnesium oxide and sulfate [Concomitant]
     Dates: start: 20220815
  13. potassium chloride (intermittent dosing) [Concomitant]
     Dates: start: 20220815

REACTIONS (11)
  - Orthopnoea [None]
  - Dyspnoea exertional [None]
  - Fatigue [None]
  - Exercise tolerance decreased [None]
  - Weight increased [None]
  - Erythema [None]
  - Oedema peripheral [None]
  - Peripheral venous disease [None]
  - Electrocardiogram QT prolonged [None]
  - Ventricular fibrillation [None]
  - Cardio-respiratory arrest [None]

NARRATIVE: CASE EVENT DATE: 20220817
